FAERS Safety Report 4929625-1 (Version None)
Quarter: 2006Q1

REPORT INFORMATION
  Report Type: 
  Country: None (occurrence: None)
  Receive Date: 20060127
  Receipt Date: 20051128
  Transmission Date: 20060701
  Serious: Yes (Other)
  Sender: FDA-Public Use
  Company Number: 2005161873

PATIENT
  Age: 40 Year
  Sex: Female

DRUGS (1)
  1. LYRICA [Suspect]
     Indication: ILL-DEFINED DISORDER
     Dosage: 150 MG (75 MG, 2 IN 1 D)
     Dates: start: 20051111, end: 20051121

REACTIONS (5)
  - ARTHRALGIA [None]
  - INFLUENZA [None]
  - INSOMNIA [None]
  - PAIN [None]
  - VISION BLURRED [None]
